FAERS Safety Report 23874922 (Version 1)
Quarter: 2024Q2

REPORT INFORMATION
  Report Type: Spontaneous
  Country: US (occurrence: US)
  Receive Date: 20240520
  Receipt Date: 20240520
  Transmission Date: 20240715
  Serious: No
  Sender: FDA-Public Use
  Company Number: US-MYLANLABS-2024M1037519

PATIENT
  Age: 5 Year
  Sex: Male

DRUGS (1)
  1. METHYLPHENIDATE [Suspect]
     Active Substance: METHYLPHENIDATE
     Indication: Psychomotor hyperactivity
     Dosage: 10 MILLIGRAM, QD (1.1 MG/HR FOR 9 HOURS)
     Route: 062
     Dates: start: 20240412

REACTIONS (2)
  - Product packaging quantity issue [Unknown]
  - Wrong technique in product usage process [Unknown]

NARRATIVE: CASE EVENT DATE: 20240401
